FAERS Safety Report 14445466 (Version 1)
Quarter: 2018Q1

REPORT INFORMATION
  Report Type: Spontaneous
  Country: US (occurrence: US)
  Receive Date: 20180126
  Receipt Date: 20180126
  Transmission Date: 20180509
  Serious: No
  Sender: FDA-Public Use
  Company Number: US-ABBVIE-17K-163-2063508-00

PATIENT
  Age: 30 Year
  Sex: Female

DRUGS (1)
  1. HUMIRA [Suspect]
     Active Substance: ADALIMUMAB
     Indication: RHEUMATOID ARTHRITIS
     Route: 058

REACTIONS (7)
  - Vitamin B12 decreased [Unknown]
  - Injection site pain [Unknown]
  - Drug effect decreased [Unknown]
  - Injection site bruising [Unknown]
  - Device issue [Unknown]
  - Vitamin D decreased [Unknown]
  - Stress [Unknown]
